FAERS Safety Report 7719042-3 (Version None)
Quarter: 2011Q3

REPORT INFORMATION
  Report Type: 
  Country: None (occurrence: None)
  Receive Date: 20110830
  Receipt Date: 20110824
  Transmission Date: 20111222
  Serious: Yes (Other)
  Sender: FDA-Public Use
  Company Number: FR-PFIZER INC-2011196085

PATIENT
  Age: 61 Year
  Sex: Female

DRUGS (6)
  1. AMOXICILLIN BASE [Concomitant]
     Dosage: UNK
     Route: 048
     Dates: start: 20110116, end: 20110206
  2. LOSARTAN POTASSIUM AND HYDROCHLOROTHIAZIDE [Concomitant]
  3. OFLOXACIN [Concomitant]
     Dosage: UNK
     Dates: start: 20110114, end: 20110116
  4. CLINDAMYCIN HCL [Suspect]
     Route: 048
  5. HEPARIN [Concomitant]
     Dosage: UNK
     Dates: start: 20110114
  6. AUGMENTIN '125' [Concomitant]
     Dosage: UNK
     Dates: start: 20110114, end: 20110116

REACTIONS (2)
  - SKIN TEST NEGATIVE [None]
  - DRUG ERUPTION [None]
